FAERS Safety Report 8820812 (Version 4)
Quarter: 2013Q2

REPORT INFORMATION
  Report Type: Spontaneous
  Country: US (occurrence: US)
  Receive Date: 20121002
  Receipt Date: 20130510
  Transmission Date: 20140414
  Serious: Yes (Hospitalization)
  Sender: FDA-Public Use
  Company Number: US-B.I. PHARMACEUTICALS,INC./RIDGEFIELD-2012-BP-23259BP

PATIENT
  Age: 87 Year
  Sex: Female
  Weight: 61.23 kg

DRUGS (12)
  1. PRADAXA [Suspect]
     Indication: ATRIAL FIBRILLATION
     Dosage: 300 MG
     Route: 048
     Dates: start: 20110616, end: 20110919
  2. SYNTHROID [Concomitant]
     Dosage: 50 MCG
     Route: 048
     Dates: start: 20030711
  3. PLETAL [Concomitant]
     Indication: OEDEMA PERIPHERAL
     Dosage: 100 MG
     Route: 048
     Dates: start: 20101020, end: 201108
  4. LISINOPRIL [Concomitant]
     Dosage: 5 MG
     Route: 048
     Dates: start: 20110505
  5. MAG OXIDE [Concomitant]
     Dosage: 800 MG
     Route: 048
     Dates: start: 20110224
  6. ZOCOR [Concomitant]
     Dosage: 20 MG
     Route: 048
     Dates: start: 20070420
  7. PACERONE [Concomitant]
     Dosage: 100 MG
     Route: 048
     Dates: start: 20110204
  8. REQUIP [Concomitant]
     Indication: RESTLESS LEGS SYNDROME
     Route: 048
     Dates: start: 20110418
  9. FERROUS SULPHATE [Concomitant]
     Dosage: 325 MG
     Route: 048
     Dates: start: 20080409, end: 201111
  10. TRAMADOL [Concomitant]
     Dates: start: 20100924, end: 201112
  11. LASIX [Concomitant]
     Dates: start: 20110307, end: 201202
  12. CIPRO [Concomitant]
     Dosage: 1000 MG
     Route: 048

REACTIONS (7)
  - Upper gastrointestinal haemorrhage [Recovered/Resolved]
  - Fatigue [Recovered/Resolved]
  - Asthenia [Recovered/Resolved]
  - Anaemia [Recovered/Resolved]
  - Dyspnoea [Recovered/Resolved]
  - Nephropathy [Unknown]
  - Balance disorder [Unknown]
